FAERS Safety Report 18232490 (Version 2)
Quarter: 2020Q3

REPORT INFORMATION
  Report Type: Spontaneous
  Country: US (occurrence: US)
  Receive Date: 20200904
  Receipt Date: 20200904
  Transmission Date: 20201103
  Serious: Yes (Other)
  Sender: FDA-Public Use
  Company Number: US-PFIZER INC-2020337703

PATIENT
  Age: 53 Year
  Sex: Male
  Weight: 76.2 kg

DRUGS (7)
  1. GABAPENTIN. [Suspect]
     Active Substance: GABAPENTIN
     Indication: PETIT MAL EPILEPSY
     Dosage: 900 MG, 3X/DAY (TAKES AT 5:30 AM IN THE MORNING AND AT 2 PM AND THEN AT 10 PM)
     Route: 048
  2. CLONAZEPAM. [Concomitant]
     Active Substance: CLONAZEPAM
     Indication: PETIT MAL EPILEPSY
     Dosage: 1 MG, 2X/DAY
  3. LAMOTRIGINE. [Concomitant]
     Active Substance: LAMOTRIGINE
     Indication: PETIT MAL EPILEPSY
     Dosage: 225 MG, DAILY
  4. VIMPAT [Concomitant]
     Active Substance: LACOSAMIDE
     Indication: PETIT MAL EPILEPSY
     Dosage: 200 MG
  5. PHENOBARBITAL. [Concomitant]
     Active Substance: PHENOBARBITAL
     Indication: PETIT MAL EPILEPSY
     Dosage: 90 MG, DAILY [60MG IN THE MORNING AND 30MG IN THE EVENING]
  6. VIMPAT [Concomitant]
     Active Substance: LACOSAMIDE
     Dosage: 50 MG, 2X/DAY
  7. KLONOPIN [Concomitant]
     Active Substance: CLONAZEPAM
     Dosage: UNK

REACTIONS (15)
  - Muscle atrophy [Unknown]
  - Abdominal pain upper [Recovered/Resolved]
  - Mental impairment [Unknown]
  - Hypoaesthesia oral [Unknown]
  - Fatigue [Unknown]
  - Somnolence [Unknown]
  - Amnesia [Unknown]
  - Constipation [Unknown]
  - Myalgia [Recovered/Resolved]
  - Balance disorder [Unknown]
  - Hypoaesthesia [Unknown]
  - Swelling [Unknown]
  - Dizziness [Unknown]
  - Peripheral swelling [Unknown]
  - Muscular weakness [Recovered/Resolved]
